FAERS Safety Report 25735492 (Version 1)
Quarter: 2025Q3

REPORT INFORMATION
  Report Type: Spontaneous
  Country: TW (occurrence: None)
  Receive Date: 20250828
  Receipt Date: 20250828
  Transmission Date: 20251021
  Serious: Yes (Other)
  Sender: ENCUBE ETHICALS PVT. LTD.
  Company Number: TW-Encube-002193

PATIENT
  Age: 50 Year
  Sex: Male

DRUGS (1)
  1. TACROLIMUS [Suspect]
     Active Substance: TACROLIMUS
     Indication: Prophylaxis against transplant rejection

REACTIONS (6)
  - Toxicity to various agents [Unknown]
  - Drug interaction [Unknown]
  - Overdose [Unknown]
  - Ileus paralytic [Unknown]
  - Off label use [Unknown]
  - Acute kidney injury [Recovering/Resolving]
